FAERS Safety Report 10596228 (Version 2)
Quarter: 2014Q4

REPORT INFORMATION
  Report Type: Spontaneous
  Country: ES (occurrence: ES)
  Receive Date: 20141120
  Receipt Date: 20141124
  Transmission Date: 20150529
  Serious: No
  Sender: FDA-Public Use
  Company Number: ES-GLAXOSMITHKLINE-ES2014GSK018270

PATIENT
  Age: 79 Year
  Sex: Female

DRUGS (3)
  1. HEPARIN [Concomitant]
     Active Substance: HEPARIN SODIUM
     Dosage: UNK
     Dates: end: 20141029
  2. REVOLADE [Suspect]
     Active Substance: ELTROMBOPAG
     Indication: IMMUNE THROMBOCYTOPENIC PURPURA
     Dosage: 50 MG, EVERY 48 HOURS
     Route: 048
     Dates: start: 20141006, end: 20141029
  3. REVOLADE [Suspect]
     Active Substance: ELTROMBOPAG
     Dosage: 50 MG, EVERY 72 HOURS

REACTIONS (1)
  - Supraventricular tachyarrhythmia [Recovered/Resolved]

NARRATIVE: CASE EVENT DATE: 20141020
